FAERS Safety Report 4976362-3 (Version None)
Quarter: 2006Q2

REPORT INFORMATION
  Report Type: 
  Country: None (occurrence: None)
  Receive Date: 20060412
  Receipt Date: 20060403
  Transmission Date: 20061013
  Serious: Yes (Other)
  Sender: FDA-Public Use
  Company Number: S06-USA-01167-03

PATIENT
  Age: 14 Year
  Sex: Female
  Weight: 63.9572 kg

DRUGS (1)
  1. CERVIDIL [Suspect]
     Indication: LABOUR INDUCTION
     Dates: start: 20060216, end: 20060217

REACTIONS (4)
  - DEVICE BREAKAGE [None]
  - DRUG EXPOSURE DURING PREGNANCY [None]
  - FOREIGN BODY TRAUMA [None]
  - UTERINE HYPERTONUS [None]
